FAERS Safety Report 23314091 (Version 1)
Quarter: 2023Q4

REPORT INFORMATION
  Report Type: Spontaneous
  Country: DE (occurrence: DE)
  Receive Date: 20231219
  Receipt Date: 20231219
  Transmission Date: 20240110
  Serious: Yes (Other)
  Sender: FDA-Public Use
  Company Number: DE-AMK-270441

PATIENT
  Sex: Female
  Weight: 76 kg

DRUGS (9)
  1. FRAGMIN [Suspect]
     Active Substance: DALTEPARIN SODIUM
     Indication: Thrombosis prophylaxis
     Dosage: 0-0-1
     Route: 058
     Dates: start: 20231026, end: 20231102
  2. SPIRONOLACTONE [Concomitant]
     Active Substance: SPIRONOLACTONE
     Dosage: LONG-TERM MEDICATION
  3. METAMIZOLE [Concomitant]
     Active Substance: METAMIZOLE
     Dates: start: 20231026
  4. DICLOFENAC DIETHYLAMINE [Concomitant]
     Active Substance: DICLOFENAC DIETHYLAMINE
     Dates: start: 20231026
  5. CANDESARTAN [Concomitant]
     Active Substance: CANDESARTAN
     Dosage: LONG-TERM MEDICATION
  6. ATORVASTATIN [Concomitant]
     Active Substance: ATORVASTATIN
     Dosage: LONG-TERM MEDICATION
  7. NALOXONE HYDROCHLORIDE\OXYCODONE HYDROCHLORIDE [Concomitant]
     Active Substance: NALOXONE HYDROCHLORIDE\OXYCODONE HYDROCHLORIDE
     Dates: start: 20231026
  8. PANTOPRAZOLE [Concomitant]
     Active Substance: PANTOPRAZOLE
     Dates: start: 20231026
  9. ACETAMINOPHEN [Concomitant]
     Active Substance: ACETAMINOPHEN
     Dates: start: 20231027, end: 20231028

REACTIONS (1)
  - Deep vein thrombosis postoperative [Not Recovered/Not Resolved]

NARRATIVE: CASE EVENT DATE: 20231102
